FAERS Safety Report 20987913 (Version 1)
Quarter: 2022Q2

REPORT INFORMATION
  Report Type: Spontaneous
  Country: US (occurrence: US)
  Receive Date: 20220621
  Receipt Date: 20220621
  Transmission Date: 20220721
  Serious: No
  Sender: FDA-Public Use
  Company Number: US-VIIV HEALTHCARE LIMITED-US2022AMR092996

PATIENT
  Sex: Male

DRUGS (2)
  1. RILPIVIRINE [Suspect]
     Active Substance: RILPIVIRINE
     Indication: Product used for unknown indication
     Dosage: UNK, Z, 400 MG/2ML CABOTEGRAVIR + 600MG/2ML RILPILVIRINE, ONCE MONTHLY
     Route: 065
     Dates: start: 20220609
  2. CABOTEGRAVIR [Suspect]
     Active Substance: CABOTEGRAVIR
     Indication: Product used for unknown indication
     Dosage: UNK, Z, 400 MG/2ML CABOTEGRAVIR + 600MG/2ML RILPILVIRINE, ONCE MONTHLY
     Route: 065
     Dates: start: 20220609

REACTIONS (1)
  - Incorrect dose administered [Unknown]
